FAERS Safety Report 8106461-9 (Version None)
Quarter: 2012Q1

REPORT INFORMATION
  Report Type: 
  Country: None (occurrence: None)
  Receive Date: 20120202
  Receipt Date: 20120126
  Transmission Date: 20120608
  Serious: No
  Sender: FDA-Public Use
  Company Number: US-BAYER-2012-007544

PATIENT
  Sex: Female

DRUGS (2)
  1. MIRENA [Suspect]
     Indication: CONTRACEPTION
     Dosage: 20 MCG/24HR, CONT
     Route: 015
     Dates: start: 20111230, end: 20120126
  2. MIRENA [Suspect]
     Indication: MENORRHAGIA

REACTIONS (8)
  - ABDOMINAL PAIN [None]
  - HEADACHE [None]
  - FEELING ABNORMAL [None]
  - DEPRESSION [None]
  - ANXIETY [None]
  - BACK PAIN [None]
  - MOOD ALTERED [None]
  - BREAST TENDERNESS [None]
